FAERS Safety Report 23731793 (Version 2)
Quarter: 2024Q2

REPORT INFORMATION
  Report Type: Spontaneous
  Country: US (occurrence: US)
  Receive Date: 20240411
  Receipt Date: 20240509
  Transmission Date: 20240716
  Serious: No
  Sender: FDA-Public Use
  Company Number: US-MYLANLABS-2024M1030363

PATIENT
  Sex: Female

DRUGS (7)
  1. TYRVAYA [Suspect]
     Active Substance: VARENICLINE TARTRATE
     Indication: Dry eye
     Dosage: 0.03 MILLIGRAM, BID (1 SPRAY IN EACH NOSTRIL, ONCE AT  MORNING AND NIGHT)
     Route: 045
  2. HUMIRA [Concomitant]
     Active Substance: ADALIMUMAB
     Dosage: UNK
     Route: 065
  3. AMLODIPINE [Concomitant]
     Active Substance: AMLODIPINE BESYLATE
     Dosage: UNK
     Route: 065
  4. HYDROCHLOROTHIAZIDE [Concomitant]
     Active Substance: HYDROCHLOROTHIAZIDE
     Dosage: UNK
     Route: 065
  5. CRESTOR [Concomitant]
     Active Substance: ROSUVASTATIN CALCIUM
     Dosage: UNK
     Route: 065
  6. MIEBO [Concomitant]
     Active Substance: PERFLUOROHEXYLOCTANE
     Dosage: UNK
     Route: 065
  7. LOSARTAN [Concomitant]
     Active Substance: LOSARTAN
     Dosage: UNK
     Route: 065

REACTIONS (1)
  - Sneezing [Unknown]
